FAERS Safety Report 5450192-0 (Version None)
Quarter: 2007Q3

REPORT INFORMATION
  Report Type: 
  Country: None (occurrence: None)
  Receive Date: 20070912
  Receipt Date: 20070903
  Transmission Date: 20080115
  Serious: Yes (Death)
  Sender: FDA-Public Use
  Company Number: JP-ELI_LILLY_AND_COMPANY-JP200709000135

PATIENT

DRUGS (2)
  1. PEMETREXED [Suspect]
     Indication: PLEURAL MESOTHELIOMA
     Dosage: UNK, OTHER
     Route: 065
     Dates: start: 20070820, end: 20070820
  2. CISPLATIN [Suspect]
     Indication: PLEURAL MESOTHELIOMA
     Dosage: UNK, OTHER
     Route: 042
     Dates: start: 20070820, end: 20070820

REACTIONS (1)
  - GASTRIC PERFORATION [None]
